FAERS Safety Report 21129038 (Version 1)
Quarter: 2022Q3

REPORT INFORMATION
  Report Type: Spontaneous
  Country: US (occurrence: US)
  Receive Date: 20220725
  Receipt Date: 20220725
  Transmission Date: 20221027
  Serious: No
  Sender: FDA-Public Use
  Company Number: US-NOVARTISTESTPH-NVSC2022US166540

PATIENT
  Sex: Female

DRUGS (2)
  1. GLEEVEC [Suspect]
     Active Substance: IMATINIB MESYLATE
     Indication: Metastases to peritoneum
     Dosage: 400 MG, QD
     Route: 065
     Dates: start: 20220623, end: 20220713
  2. GLEEVEC [Suspect]
     Active Substance: IMATINIB MESYLATE
     Indication: Gastrointestinal stromal tumour

REACTIONS (2)
  - Rash macular [Recovering/Resolving]
  - Skin irritation [Recovering/Resolving]
